FAERS Safety Report 17119377 (Version 1)
Quarter: 2019Q4

REPORT INFORMATION
  Report Type: Spontaneous
  Country: US (occurrence: US)
  Receive Date: 20191206
  Receipt Date: 20191206
  Transmission Date: 20200122
  Serious: Yes (Hospitalization)
  Sender: FDA-Public Use
  Company Number: US-ROCHE-2488823

PATIENT
  Sex: Female

DRUGS (11)
  1. DIPHENHYDRAMINE. [Concomitant]
     Active Substance: DIPHENHYDRAMINE
  2. SYSTANE BALANCE [Concomitant]
     Active Substance: PROPYLENE GLYCOL
  3. HYDROCHLOROTHIAZIDE. [Concomitant]
     Active Substance: HYDROCHLOROTHIAZIDE
  4. ZYRTEC [Concomitant]
     Active Substance: CETIRIZINE HYDROCHLORIDE
  5. AMLODIPINE [Concomitant]
     Active Substance: AMLODIPINE BESYLATE
  6. RITUXAN [Suspect]
     Active Substance: RITUXIMAB
     Indication: CHRONIC LYMPHOCYTIC LEUKAEMIA
     Route: 065
  7. VENCLEXTA [Suspect]
     Active Substance: VENETOCLAX
     Indication: CHRONIC LYMPHOCYTIC LEUKAEMIA
     Dosage: LAST DOSE ADMINISTERED ON AN UNKNOWN DATE IN 2019
     Route: 048
     Dates: start: 20190709
  8. DIOVOL [ALUMINIUM HYDROXIDE-MAGNESIUM CARBONATE GEL;MAGNESIUM HYDROXID [Concomitant]
  9. ALLOPURINOL. [Concomitant]
     Active Substance: ALLOPURINOL
  10. ATORVASTATIN CALCIUM. [Concomitant]
     Active Substance: ATORVASTATIN CALCIUM
  11. QUINAPRIL. [Concomitant]
     Active Substance: QUINAPRIL

REACTIONS (1)
  - Neuropathy peripheral [Recovering/Resolving]
